FAERS Safety Report 19991817 (Version 2)
Quarter: 2021Q4

REPORT INFORMATION
  Report Type: Spontaneous
  Country: GB (occurrence: GB)
  Receive Date: 20211025
  Receipt Date: 20211211
  Transmission Date: 20220303
  Serious: Yes (Other)
  Sender: FDA-Public Use
  Company Number: GB-ALXN-A202111589

PATIENT
  Age: 5 Year
  Sex: Female

DRUGS (2)
  1. KANUMA [Suspect]
     Active Substance: SEBELIPASE ALFA
     Indication: Product used for unknown indication
     Dosage: UNK
     Route: 042
  2. KANUMA [Suspect]
     Active Substance: SEBELIPASE ALFA
     Dosage: UNK, QW
     Route: 042

REACTIONS (2)
  - Facial bones fracture [Unknown]
  - Fall [Unknown]

NARRATIVE: CASE EVENT DATE: 20211013
